FAERS Safety Report 11330022 (Version 1)
Quarter: 2015Q3

REPORT INFORMATION
  Report Type: Other
  Country: GB (occurrence: GB)
  Receive Date: 20150803
  Receipt Date: 20150803
  Transmission Date: 20151125
  Serious: Yes (Other)
  Sender: FDA-Public Use
  Company Number: GB-TARO PHARMACEUTICALS USA.,INC-2015SUN01703

PATIENT

DRUGS (3)
  1. WARFARIN [Suspect]
     Active Substance: WARFARIN
     Indication: ANTICOAGULANT THERAPY
     Dosage: 1 MG, CONTINUING
     Route: 048
     Dates: start: 201212
  2. CETIRIZINE [Interacting]
     Active Substance: CETIRIZINE HYDROCHLORIDE
     Indication: PRURITUS
     Dosage: UNK, LIQUID
     Route: 048
     Dates: start: 201502
  3. CETIRIZINE [Interacting]
     Active Substance: CETIRIZINE HYDROCHLORIDE
     Dosage: 10 MG, TABLET
     Route: 048
     Dates: start: 20150702, end: 20150708

REACTIONS (2)
  - International normalised ratio fluctuation [Recovering/Resolving]
  - Drug interaction [Unknown]
